FAERS Safety Report 11946009 (Version 2)
Quarter: 2016Q1

REPORT INFORMATION
  Report Type: Spontaneous
  Country: US (occurrence: US)
  Receive Date: 20160125
  Receipt Date: 20160125
  Transmission Date: 20160526
  Serious: No
  Sender: FDA-Public Use
  Company Number: US-OTSUKA-02100-USA-99-0225

PATIENT
  Age: 70 Year
  Sex: Female

DRUGS (1)
  1. PLETAL [Suspect]
     Active Substance: CILOSTAZOL
     Dosage: 100 MG, BID
     Route: 048
     Dates: start: 1999, end: 199911

REACTIONS (2)
  - Headache [Recovered/Resolved]
  - Vomiting [Recovered/Resolved]

NARRATIVE: CASE EVENT DATE: 199911
